FAERS Safety Report 25128511 (Version 1)
Quarter: 2025Q1

REPORT INFORMATION
  Report Type: Spontaneous
  Country: GB (occurrence: GB)
  Receive Date: 20250327
  Receipt Date: 20250327
  Transmission Date: 20250409
  Serious: Yes (Life-Threatening, Other)
  Sender: RANBAXY
  Company Number: GB-SUN PHARMACEUTICAL INDUSTRIES LTD-2025RR-500791

PATIENT
  Sex: Female

DRUGS (1)
  1. PREGABALIN [Suspect]
     Active Substance: PREGABALIN
     Indication: Back pain
     Route: 065
     Dates: start: 20250310, end: 20250311

REACTIONS (2)
  - Medication error [Unknown]
  - Self-injurious ideation [Recovered/Resolved with Sequelae]

NARRATIVE: CASE EVENT DATE: 20250311
